FAERS Safety Report 10639826 (Version 1)
Quarter: 2014Q4

REPORT INFORMATION
  Report Type: Spontaneous
  Country: US (occurrence: None)
  Receive Date: 20141205
  Receipt Date: 20141205
  Transmission Date: 20150529
  Serious: No
  Sender: FDA-Public Use
  Company Number: None

PATIENT
  Sex: Male

DRUGS (17)
  1. HYDROCODONE/ACETAMINOPHEN [Concomitant]
     Active Substance: ACETAMINOPHEN\HYDROCODONE
  2. GLIPIZIDE. [Concomitant]
     Active Substance: GLIPIZIDE
  3. TERAZOSIN [Concomitant]
     Active Substance: TERAZOSIN\TERAZOSIN HYDROCHLORIDE
  4. TEMAZEPAM. [Concomitant]
     Active Substance: TEMAZEPAM
  5. PRAVASTATIN [Concomitant]
     Active Substance: PRAVASTATIN\PRAVASTATIN SODIUM
  6. VICODIN [Concomitant]
     Active Substance: ACETAMINOPHEN\HYDROCODONE BITARTRATE
  7. LEVOTHYROXINE [Concomitant]
     Active Substance: LEVOTHYROXINE
  8. PREDNISONE. [Concomitant]
     Active Substance: PREDNISONE
  9. ZOLPIDEM [Concomitant]
     Active Substance: ZOLPIDEM\ZOLPIDEM TARTRATE
  10. METFORMIN [Concomitant]
     Active Substance: METFORMIN HYDROCHLORIDE
  11. OYSTER SHELL [Concomitant]
     Active Substance: OSTREA EDULIS SHELL
  12. ASPIRIN. [Concomitant]
     Active Substance: ASPIRIN
  13. XTANDI [Concomitant]
     Active Substance: ENZALUTAMIDE
  14. Q-TUSSIN [Concomitant]
     Active Substance: GUAIFENESIN
  15. XTANDI [Suspect]
     Active Substance: ENZALUTAMIDE
     Indication: PROSTATE CANCER
     Route: 048
     Dates: start: 20141010
  16. BENAZEPRIL [Concomitant]
     Active Substance: BENAZEPRIL\BENAZEPRIL HYDROCHLORIDE
  17. DOCOLACE [Concomitant]

REACTIONS (2)
  - Asthenia [None]
  - Muscular weakness [None]
